FAERS Safety Report 20953021 (Version 4)
Quarter: 2022Q3

REPORT INFORMATION
  Report Type: Spontaneous
  Country: AU (occurrence: AU)
  Receive Date: 20220613
  Receipt Date: 20220817
  Transmission Date: 20221026
  Serious: Yes (Hospitalization)
  Sender: FDA-Public Use
  Company Number: AU-MYLANLABS-2022M1043310

PATIENT
  Age: 36 Year
  Sex: Female

DRUGS (9)
  1. CLOZARIL [Suspect]
     Active Substance: CLOZAPINE
     Indication: Schizophrenia
     Dosage: 200 MILLIGRAM (13-MAY-2022 00:00)
     Route: 048
  2. CLOZARIL [Suspect]
     Active Substance: CLOZAPINE
     Indication: Schizoaffective disorder
     Dosage: 200 MILLIGRAM, NOCTE (17-MAY-2022 00:00)
     Route: 048
     Dates: end: 20220606
  3. CLOZARIL [Suspect]
     Active Substance: CLOZAPINE
     Indication: Hallucination, auditory
  4. LEVOTHYROXINE [Concomitant]
     Active Substance: LEVOTHYROXINE
     Indication: Hypothyroidism
     Dosage: 75 MICROGRAM, QD
     Route: 065
  5. LITHIUM [Concomitant]
     Active Substance: LITHIUM
     Dosage: 250 MILLIGRAM, QD
     Route: 065
  6. OLANZAPINE [Concomitant]
     Active Substance: OLANZAPINE
     Indication: Agitation
     Dosage: 10 MILLIGRAM, NOCTE
     Route: 065
  7. WAFER [Concomitant]
     Indication: Agitation
     Dosage: UNK, PRN
     Route: 065
  8. ZOPICLONE [Concomitant]
     Active Substance: ZOPICLONE
     Indication: Sleep disorder
     Dosage: 7.5 GRAM
     Route: 065
  9. DIAZEPAM [Concomitant]
     Active Substance: DIAZEPAM
     Indication: Anxiety
     Dosage: UNK, PRN (5-10 G PRN)
     Route: 065

REACTIONS (7)
  - Troponin I increased [Recovered/Resolved]
  - C-reactive protein increased [Recovering/Resolving]
  - Myocarditis [Recovered/Resolved]
  - Blood uric acid increased [Unknown]
  - Gamma-glutamyltransferase increased [Unknown]
  - Antipsychotic drug level decreased [Recovering/Resolving]
  - Alanine aminotransferase increased [Unknown]

NARRATIVE: CASE EVENT DATE: 20220530
